FAERS Safety Report 20029125 (Version 2)
Quarter: 2022Q2

REPORT INFORMATION
  Report Type: Report from Study
  Country: KR (occurrence: KR)
  Receive Date: 20211103
  Receipt Date: 20220509
  Transmission Date: 20220721
  Serious: Yes (Hospitalization, Other)
  Sender: FDA-Public Use
  Company Number: KR-BRISTOL-MYERS SQUIBB COMPANY-BMS-2021-114754

PATIENT
  Age: 64 Year
  Sex: Male
  Weight: 70 kg

DRUGS (1)
  1. OPDIVO [Suspect]
     Active Substance: NIVOLUMAB
     Indication: Renal cell carcinoma
     Dosage: 3 MILLIGRAM/KILOGRAM, Q2WK
     Route: 041
     Dates: start: 20200922, end: 20210929

REACTIONS (5)
  - Anaemia [Not Recovered/Not Resolved]
  - Femoral neck fracture [Recovered/Resolved]
  - Fall [Unknown]
  - Dermatitis [Not Recovered/Not Resolved]
  - Hyperkalaemia [Not Recovered/Not Resolved]

NARRATIVE: CASE EVENT DATE: 20201006
